FAERS Safety Report 24366915 (Version 2)
Quarter: 2024Q4

REPORT INFORMATION
  Report Type: Report from Study
  Country: US (occurrence: US)
  Receive Date: 20240926
  Receipt Date: 20241122
  Transmission Date: 20250114
  Serious: Yes (Hospitalization, Other)
  Sender: ABBVIE
  Company Number: US-ABBVIE-5934214

PATIENT
  Age: 78 Year
  Sex: Female

DRUGS (2)
  1. HUMIRA [Suspect]
     Active Substance: ADALIMUMAB
     Indication: Uveitis
     Route: 058
     Dates: start: 20220107
  2. HUMIRA [Suspect]
     Active Substance: ADALIMUMAB
     Route: 058

REACTIONS (12)
  - Ischaemic stroke [Recovering/Resolving]
  - Blister [Not Recovered/Not Resolved]
  - Cardiac failure congestive [Not Recovered/Not Resolved]
  - Heart rate decreased [Not Recovered/Not Resolved]
  - Eye pruritus [Not Recovered/Not Resolved]
  - Cardiac amyloidosis [Unknown]
  - Hypotension [Not Recovered/Not Resolved]
  - Rehabilitation therapy [Unknown]
  - Back pain [Recovering/Resolving]
  - Vein disorder [Recovering/Resolving]
  - Visual impairment [Unknown]
  - Extrasystoles [Unknown]

NARRATIVE: CASE EVENT DATE: 20220101
